FAERS Safety Report 5531904-4 (Version None)
Quarter: 2007Q4

REPORT INFORMATION
  Report Type: 
  Country: None (occurrence: None)
  Receive Date: 20071120
  Receipt Date: 20070803
  Transmission Date: 20080405
  Serious: No
  Sender: FDA-Public Use
  Company Number: WAES 0708USA00614

PATIENT
  Age: 73 Year
  Sex: Male

DRUGS (2)
  1. JANUVIA [Suspect]
     Indication: DRUG USE FOR UNKNOWN INDICATION
     Dosage: 25 MG/PO
     Route: 048
  2. COREG [Concomitant]

REACTIONS (2)
  - CARDIOMYOPATHY [None]
  - ISCHAEMIA [None]
